FAERS Safety Report 18881339 (Version 3)
Quarter: 2021Q2

REPORT INFORMATION
  Report Type: Spontaneous
  Country: FR (occurrence: FR)
  Receive Date: 20210212
  Receipt Date: 20210405
  Transmission Date: 20210717
  Serious: Yes (Other)
  Sender: FDA-Public Use
  Company Number: FR-SA-2021SA040774

PATIENT
  Age: 88 Year
  Sex: Female
  Weight: 67 kg

DRUGS (11)
  1. PLAVIX [Suspect]
     Active Substance: CLOPIDOGREL BISULFATE
     Indication: CEREBELLAR ISCHAEMIA
     Dosage: 1 DF, QD
     Route: 065
     Dates: start: 2005
  2. CLOPIDOGREL BISULFATE. [Concomitant]
     Active Substance: CLOPIDOGREL BISULFATE
     Dosage: UNK
     Dates: start: 202002
  3. UVEDOSE [Concomitant]
     Active Substance: CHOLECALCIFEROL
     Dosage: 1 DF, QM
  4. PLAVIX [Suspect]
     Active Substance: CLOPIDOGREL BISULFATE
     Dosage: 1 DF, QD
     Dates: start: 200711
  5. SINVASTATINA [Concomitant]
     Active Substance: SIMVASTATIN
     Dosage: 20 MG, QD
  6. AMLODIPINE [Concomitant]
     Active Substance: AMLODIPINE BESYLATE
     Dosage: 1 DF (IN EVENING)
  7. MELAXOSE [Concomitant]
     Active Substance: LACTULOSE\PARAFFIN
     Dosage: 1 DF, TID
  8. DOLIPRANE [Concomitant]
     Active Substance: ACETAMINOPHEN
     Dosage: 1 DF, QD
  9. OXAZEPAM. [Concomitant]
     Active Substance: OXAZEPAM
     Dosage: 1 DF (IN EVENING)
  10. RILMENIDINE [Concomitant]
     Active Substance: RILMENIDINE
     Dosage: 1 MG, QD (IN MORNING)
  11. OMEPRAZOLE. [Concomitant]
     Active Substance: OMEPRAZOLE
     Dosage: 20 I EVERY OTHER NIGHT

REACTIONS (17)
  - Sleep disorder [Unknown]
  - Irritability [Unknown]
  - Haematochezia [Unknown]
  - Asthenia [Unknown]
  - Intermenstrual bleeding [Unknown]
  - Dementia [Unknown]
  - Hypersomnia [Unknown]
  - Abdominal pain [Unknown]
  - Aggression [Unknown]
  - Menometrorrhagia [Recovered/Resolved]
  - Colitis ischaemic [Unknown]
  - Intestinal haemorrhage [Unknown]
  - Tinnitus [Unknown]
  - Uterine haemorrhage [Unknown]
  - Cognitive disorder [Unknown]
  - Affective disorder [Unknown]
  - Terminal insomnia [Unknown]

NARRATIVE: CASE EVENT DATE: 20080827
